FAERS Safety Report 23796701 (Version 2)
Quarter: 2024Q4

REPORT INFORMATION
  Report Type: Report from Study
  Country: EG (occurrence: EG)
  Receive Date: 20240430
  Receipt Date: 20241223
  Transmission Date: 20250115
  Serious: Yes (Other)
  Sender: ROCHE
  Company Number: EG-ROCHE-3305026

PATIENT
  Age: 26 Year
  Sex: Female
  Weight: 85.0 kg

DRUGS (1)
  1. OCREVUS [Suspect]
     Active Substance: OCRELIZUMAB
     Indication: Multiple sclerosis
     Dosage: LAST OCREVUS DOSE WAS IN 29/SEP/2022
     Route: 042
     Dates: start: 20210316

REACTIONS (4)
  - Maternal exposure before pregnancy [Unknown]
  - Haemorrhoids [Not Recovered/Not Resolved]
  - Anal fissure [Not Recovered/Not Resolved]
  - Multiple sclerosis [Recovered/Resolved]
